FAERS Safety Report 11628278 (Version 2)
Quarter: 2015Q4

REPORT INFORMATION
  Report Type: Spontaneous
  Country: JP (occurrence: JP)
  Receive Date: 20151014
  Receipt Date: 20151228
  Transmission Date: 20160304
  Serious: Yes (Other)
  Sender: FDA-Public Use
  Company Number: JP-MYLANLABS-2015M1033599

PATIENT

DRUGS (9)
  1. NOVORAPID [Suspect]
     Active Substance: INSULIN ASPART
     Dosage: UNK
     Route: 058
  2. PREDNISOLONE MYLAN [Suspect]
     Active Substance: PREDNISOLONE
     Indication: WEBER-CHRISTIAN DISEASE
     Dosage: 27.5 MG, QD
     Route: 048
  3. PREDNISOLONE MYLAN [Suspect]
     Active Substance: PREDNISOLONE
     Dosage: 6 MG, QD
     Route: 048
  4. PREDNISOLONE MYLAN [Suspect]
     Active Substance: PREDNISOLONE
     Dosage: 3.5 MG, QD
     Route: 048
  5. PREDNISOLONE MYLAN [Suspect]
     Active Substance: PREDNISOLONE
     Dosage: 10 MG, QD
     Route: 048
  6. NOVORAPID [Suspect]
     Active Substance: INSULIN ASPART
     Indication: DIABETES MELLITUS
     Dosage: 3 TIMES
     Route: 058
  7. VICTOZA [Suspect]
     Active Substance: LIRAGLUTIDE
     Indication: DIABETES MELLITUS
     Dosage: 0.6 MG, QD
     Route: 058
  8. PREDNISOLONE MYLAN [Suspect]
     Active Substance: PREDNISOLONE
     Dosage: 2.5 MG, QD
     Route: 048
  9. ADRENAL CORTEX PREPARATIONS [Suspect]
     Active Substance: UNSPECIFIED INGREDIENT
     Indication: WEBER-CHRISTIAN DISEASE
     Route: 042

REACTIONS (2)
  - Cognitive disorder [Recovering/Resolving]
  - Diabetes mellitus [Recovering/Resolving]
